FAERS Safety Report 12402175 (Version 2)
Quarter: 2016Q2

REPORT INFORMATION
  Report Type: Spontaneous
  Country: US (occurrence: US)
  Receive Date: 20160525
  Receipt Date: 20160527
  Transmission Date: 20160815
  Serious: No
  Sender: FDA-Public Use
  Company Number: US-SA-2016SA011025

PATIENT
  Sex: Male

DRUGS (2)
  1. NOVOLIN R [Concomitant]
     Active Substance: INSULIN HUMAN
     Dosage: DOSE:100 UNIT(S)
  2. LANTUS [Suspect]
     Active Substance: INSULIN GLARGINE
     Indication: DIABETES MELLITUS
     Dosage: DOSE:20 UNIT(S)
     Route: 065
     Dates: start: 2006

REACTIONS (1)
  - Hypoacusis [Unknown]
